FAERS Safety Report 9403783 (Version 2)
Quarter: 2013Q3

REPORT INFORMATION
  Report Type: Spontaneous
  Country: GB (occurrence: GB)
  Receive Date: 20130717
  Receipt Date: 20130805
  Transmission Date: 20140515
  Serious: Yes (Other)
  Sender: FDA-Public Use
  Company Number: GB-ROCHE-1249504

PATIENT
  Sex: Female

DRUGS (4)
  1. ROACTEMRA [Suspect]
     Indication: RHEUMATOID ARTHRITIS
     Dosage: 20 MG PER ML SOLUTION
     Route: 042
     Dates: start: 20130426, end: 20130625
  2. NAPROXEN [Suspect]
     Indication: RHEUMATOID ARTHRITIS
     Route: 048
  3. METHOTREXATE [Concomitant]
     Dosage: 10 MG/0.2 ML SOLUTION FOR INJECTION PRE-FILLED SYRINGES, 1 INJECTION A WEEK
     Route: 065
  4. CO-AMOXICLAV [Concomitant]
     Dosage: ON LONG TERM FOR A LOW GRADE INFECTION IN A SCREW FROM A NECK OPERATION
     Route: 065

REACTIONS (2)
  - Headache [Unknown]
  - Breast pain [Unknown]
